FAERS Safety Report 8422272 (Version 2)
Quarter: 2014Q1

REPORT INFORMATION
  Report Type: Spontaneous
  Country: US (occurrence: US)
  Receive Date: 20120223
  Receipt Date: 20140203
  Transmission Date: 20141002
  Serious: Yes (Other)
  Sender: FDA-Public Use
  Company Number: US-JNJFOC-20120207845

PATIENT
  Age: 55 Year
  Sex: Female
  Weight: 102.06 kg

DRUGS (6)
  1. DURAGESIC [Suspect]
     Indication: ARTHRITIS
     Route: 062
     Dates: start: 2009
  2. DURAGESIC [Suspect]
     Indication: ARTHRITIS
     Route: 062
  3. DURAGESIC [Suspect]
     Indication: ARTHRITIS
     Route: 062
  4. DURAGESIC [Suspect]
     Indication: ARTHRITIS
     Route: 062
     Dates: end: 2009
  5. FENTANYL TRANSDERMAL SYSTEM [Suspect]
     Indication: ARTHRITIS
     Route: 062
  6. OMEPRAZOLE [Concomitant]
     Route: 048

REACTIONS (8)
  - Cholelithiasis [Not Recovered/Not Resolved]
  - Nephrolithiasis [Recovering/Resolving]
  - Dependence [Not Recovered/Not Resolved]
  - Product quality issue [Unknown]
  - Pain [Not Recovered/Not Resolved]
  - Drug ineffective [Not Recovered/Not Resolved]
  - Migraine [Not Recovered/Not Resolved]
  - Arthralgia [Not Recovered/Not Resolved]
